FAERS Safety Report 13884367 (Version 1)
Quarter: 2017Q3

REPORT INFORMATION
  Report Type: Spontaneous
  Country: US (occurrence: None)
  Receive Date: 20170815
  Receipt Date: 20170815
  Transmission Date: 20171127
  Serious: Yes (Hospitalization)
  Sender: FDA-Public Use
  Company Number: None

PATIENT
  Age: 59 Year
  Sex: Male

DRUGS (8)
  1. METOPROLOL. [Concomitant]
     Active Substance: METOPROLOL
  2. VITAMIN D3 [Concomitant]
     Active Substance: CHOLECALCIFEROL
  3. TACROLIMUS MYLAN [Suspect]
     Active Substance: TACROLIMUS
     Indication: HEPATITIS
     Route: 048
     Dates: start: 20150820
  4. OXY [Concomitant]
     Active Substance: BENZOYL PEROXIDE
  5. NIFEDIPINE. [Concomitant]
     Active Substance: NIFEDIPINE
  6. TAMSULOSIN [Concomitant]
     Active Substance: TAMSULOSIN
  7. FOLIC ACID. [Concomitant]
     Active Substance: FOLIC ACID
  8. CLONIDINE. [Concomitant]
     Active Substance: CLONIDINE

REACTIONS (1)
  - Hospitalisation [None]

NARRATIVE: CASE EVENT DATE: 20170715
